FAERS Safety Report 23214628 (Version 1)
Quarter: 2023Q4

REPORT INFORMATION
  Report Type: Spontaneous
  Country: US (occurrence: US)
  Receive Date: 20231121
  Receipt Date: 20231121
  Transmission Date: 20240109
  Serious: No
  Sender: FDA-Public Use
  Company Number: US-Dermavant-000870

PATIENT
  Age: 54 Year
  Sex: Female

DRUGS (6)
  1. TAPINAROF [Suspect]
     Active Substance: TAPINAROF
     Indication: Psoriasis
     Dosage: AREA OF APPLICATION: SCALP AND FACE
     Route: 061
     Dates: start: 202301, end: 20231015
  2. OTEZLA [Concomitant]
     Active Substance: APREMILAST
  3. OMEPRAZOLE [Concomitant]
     Active Substance: OMEPRAZOLE
  4. ACYCLOVIR [Concomitant]
     Active Substance: ACYCLOVIR
  5. OLAY [Concomitant]
  6. COSMETICS [Concomitant]
     Active Substance: COSMETICS

REACTIONS (6)
  - Sensitive skin [Recovering/Resolving]
  - Tenderness [Recovering/Resolving]
  - Skin swelling [Recovering/Resolving]
  - Dry skin [Recovering/Resolving]
  - Pain of skin [Recovering/Resolving]
  - Skin erosion [Recovering/Resolving]

NARRATIVE: CASE EVENT DATE: 20231015
